FAERS Safety Report 6254532-4 (Version None)
Quarter: 2009Q3

REPORT INFORMATION
  Report Type: 
  Country: None (occurrence: None)
  Receive Date: 20090702
  Receipt Date: 20090619
  Transmission Date: 20100115
  Serious: Yes (Hospitalization)
  Sender: FDA-Public Use
  Company Number: FR-GENENTECH-285568

PATIENT
  Sex: Male

DRUGS (2)
  1. BEVACIZUMAB [Suspect]
     Indication: RENAL CANCER METASTATIC
     Dosage: 840 MG, UNK
     Route: 065
     Dates: start: 20090109
  2. TEMSIROLIMUS [Suspect]
     Indication: RENAL CANCER METASTATIC
     Dosage: 20 MG, UNK
     Route: 065
     Dates: start: 20090116

REACTIONS (1)
  - PNEUMOTHORAX [None]
